FAERS Safety Report 4803476-0 (Version None)
Quarter: 2005Q4

REPORT INFORMATION
  Report Type: 
  Country: None (occurrence: None)
  Receive Date: 20051019
  Receipt Date: 20051006
  Transmission Date: 20060501
  Serious: Yes (Other)
  Sender: FDA-Public Use
  Company Number: 2005SE05727

PATIENT
  Age: 38 Year
  Sex: Female

DRUGS (1)
  1. ZOMIG [Suspect]
     Indication: MIGRAINE WITHOUT AURA
     Route: 048
     Dates: start: 20050911, end: 20050911

REACTIONS (4)
  - BLOOD BILIRUBIN INCREASED [None]
  - JAUNDICE [None]
  - PRURITUS [None]
  - RASH [None]
